FAERS Safety Report 18056894 (Version 3)
Quarter: 2020Q3

REPORT INFORMATION
  Report Type: Spontaneous
  Country: GB (occurrence: GB)
  Receive Date: 20200722
  Receipt Date: 20200827
  Transmission Date: 20201103
  Serious: Yes (Hospitalization, Other)
  Sender: FDA-Public Use
  Company Number: GB-INCYTE CORPORATION-2020IN006557

PATIENT

DRUGS (2)
  1. EPREX [Concomitant]
     Active Substance: ERYTHROPOIETIN
     Indication: PRODUCT USED FOR UNKNOWN INDICATION
     Dosage: 30000 IU
     Route: 065
     Dates: start: 2019
  2. JAKAVI [Suspect]
     Active Substance: RUXOLITINIB
     Indication: MYELOFIBROSIS
     Dosage: UNK
     Route: 048
     Dates: start: 201808

REACTIONS (4)
  - Fatigue [Unknown]
  - Aplastic anaemia [Unknown]
  - Neutropenic sepsis [Unknown]
  - Acute myeloid leukaemia [Unknown]
